FAERS Safety Report 8299148-3 (Version None)
Quarter: 2012Q2

REPORT INFORMATION
  Report Type: 
  Country: None (occurrence: None)
  Receive Date: 20120419
  Receipt Date: 20120411
  Transmission Date: 20120825
  Serious: Yes (Hospitalization)
  Sender: FDA-Public Use
  Company Number: US-ROCHE-1043885

PATIENT
  Sex: Female
  Weight: 90.346 kg

DRUGS (2)
  1. XELODA [Suspect]
     Indication: BREAST CANCER METASTATIC
     Route: 048
     Dates: start: 20120131
  2. LEXAPRO [Concomitant]
     Indication: ANXIETY
     Route: 048
     Dates: start: 20090411

REACTIONS (15)
  - HYPERHIDROSIS [None]
  - URTICARIA [None]
  - GAIT DISTURBANCE [None]
  - PAIN [None]
  - COUGH [None]
  - BACK PAIN [None]
  - DYSPHEMIA [None]
  - CARDIAC DISORDER [None]
  - CEREBROVASCULAR ACCIDENT [None]
  - CHEST PAIN [None]
  - RETCHING [None]
  - HYPOTENSION [None]
  - VERTIGO [None]
  - DISORIENTATION [None]
  - ASTHENIA [None]
